FAERS Safety Report 5410157-1 (Version None)
Quarter: 2007Q3

REPORT INFORMATION
  Report Type: 
  Country: None (occurrence: None)
  Receive Date: 20070713
  Receipt Date: 20070411
  Transmission Date: 20080115
  Serious: No
  Sender: FDA-Public Use
  Company Number: 2007SP001281

PATIENT
  Age: 38 Year
  Sex: Female
  Weight: 68.0396 kg

DRUGS (5)
  1. LUNESTA [Suspect]
     Indication: INSOMNIA
     Dosage: 1.5 MG; PRN; ORAL; 2 MG; 1X; ORAL
     Route: 048
     Dates: start: 20070301, end: 20070301
  2. LUNESTA [Suspect]
     Indication: INSOMNIA
     Dosage: 1.5 MG; PRN; ORAL; 2 MG; 1X; ORAL
     Route: 048
     Dates: start: 20070410, end: 20070410
  3. BUSPAR [Concomitant]
  4. CLONAZEPAM [Concomitant]
  5. AVAPRO [Concomitant]

REACTIONS (4)
  - ABDOMINAL PAIN UPPER [None]
  - DRY MOUTH [None]
  - NERVOUSNESS [None]
  - TREMOR [None]
